FAERS Safety Report 10161840 (Version 1)
Quarter: 2014Q2

REPORT INFORMATION
  Report Type: Spontaneous
  Country: US (occurrence: None)
  Receive Date: 20140508
  Receipt Date: 20140508
  Transmission Date: 20141212
  Serious: No
  Sender: FDA-Public Use
  Company Number: None

PATIENT
  Age: 77 Year
  Sex: Male

DRUGS (6)
  1. IMBRUVICA [Suspect]
     Indication: PRODUCT USED FOR UNKNOWN INDICATION
     Dosage: 14 MG  4 CAPS DAILY  ORAL
     Route: 048
     Dates: start: 20131212
  2. CRESTOR [Concomitant]
  3. COREG [Concomitant]
  4. BABY ASPIRIN [Concomitant]
  5. MULTI VITAMIN [Concomitant]
  6. FISH OIL [Concomitant]

REACTIONS (3)
  - Fatigue [None]
  - Somnolence [None]
  - Dizziness [None]
